FAERS Safety Report 8185184-4 (Version None)
Quarter: 2012Q1

REPORT INFORMATION
  Report Type: 
  Country: None (occurrence: None)
  Receive Date: 20120305
  Receipt Date: 20120223
  Transmission Date: 20120608
  Serious: Yes (Other)
  Sender: FDA-Public Use
  Company Number: PHHY2009CA18462

PATIENT
  Sex: Female

DRUGS (8)
  1. DILANTIN [Concomitant]
  2. SANDOSTATIN LAR [Suspect]
     Dosage: 30 MG, EVERY FOUR WEEKS
     Route: 030
  3. LISINOPRIL [Concomitant]
  4. SANDOSTATIN LAR [Suspect]
     Dosage: 60 MG, QMO
     Route: 030
  5. SYNTHROID [Concomitant]
  6. SANDOSTATIN LAR [Suspect]
     Indication: ACROMEGALY
     Dosage: 30 MG, QMO
     Route: 030
     Dates: start: 20041026
  7. NORTRIPTYLINE HCL [Concomitant]
  8. TOPIRAMATE [Concomitant]

REACTIONS (16)
  - BLOOD PRESSURE INCREASED [None]
  - POLLAKIURIA [None]
  - BLINDNESS [None]
  - INFLUENZA [None]
  - BLOOD GLUCOSE INCREASED [None]
  - OEDEMA PERIPHERAL [None]
  - FLANK PAIN [None]
  - URINARY TRACT INFECTION [None]
  - DYSPNOEA [None]
  - BALANCE DISORDER [None]
  - BLOOD GLUCOSE FLUCTUATION [None]
  - LOSS OF CONSCIOUSNESS [None]
  - THYROID CYST [None]
  - NASOPHARYNGITIS [None]
  - HEADACHE [None]
  - CHEST DISCOMFORT [None]
